FAERS Safety Report 6707411-X (Version None)
Quarter: 2010Q2

REPORT INFORMATION
  Report Type: 
  Country: None (occurrence: None)
  Receive Date: 20100503
  Receipt Date: 20090612
  Transmission Date: 20101027
  Serious: No
  Sender: FDA-Public Use
  Company Number: US-ASTRAZENECA-2009UW11413

PATIENT
  Age: 31 Year
  Sex: Male

DRUGS (5)
  1. NEXIUM [Suspect]
     Route: 048
     Dates: start: 20090301, end: 20090605
  2. NEXIUM [Suspect]
     Route: 048
     Dates: start: 20090605
  3. AMOXICILLIN [Concomitant]
  4. CLARITHROMYCIN [Concomitant]
  5. METHADONE HCL [Concomitant]

REACTIONS (8)
  - ABDOMINAL PAIN UPPER [None]
  - ERUCTATION [None]
  - GINGIVAL PAIN [None]
  - GLOSSODYNIA [None]
  - HEADACHE [None]
  - PHARYNGEAL OEDEMA [None]
  - TONGUE DISCOLOURATION [None]
  - TOOTHACHE [None]
